FAERS Safety Report 5777144-5 (Version None)
Quarter: 2008Q2

REPORT INFORMATION
  Report Type: 
  Country: None (occurrence: None)
  Receive Date: 20080618
  Receipt Date: 20080609
  Transmission Date: 20081010
  Serious: Yes (Hospitalization)
  Sender: FDA-Public Use
  Company Number: US-MERCK-0805USA06282

PATIENT
  Age: 40 Year
  Sex: Female

DRUGS (10)
  1. FOSAMAX [Suspect]
     Indication: OSTEOPOROSIS
     Route: 048
     Dates: start: 20070101, end: 20080101
  2. OXYCONTIN [Concomitant]
     Route: 065
  3. PERCOCET [Concomitant]
     Route: 065
  4. KLONOPIN [Concomitant]
     Route: 065
  5. XANAX [Concomitant]
     Route: 065
  6. [THERAPY UNSPECIFIED] [Concomitant]
     Route: 065
  7. [THERAPY UNSPECIFIED] [Concomitant]
     Route: 065
  8. [THERAPY UNSPECIFIED] [Concomitant]
     Route: 065
  9. [THERAPY UNSPECIFIED] [Concomitant]
     Route: 065
  10. FOSAMAX [Suspect]
     Route: 065
     Dates: start: 20080101, end: 20080401

REACTIONS (5)
  - BACK PAIN [None]
  - BONE DISORDER [None]
  - PAIN IN JAW [None]
  - SPINAL FRACTURE [None]
  - VISION BLURRED [None]
